FAERS Safety Report 8105833-6 (Version None)
Quarter: 2012Q1

REPORT INFORMATION
  Report Type: 
  Country: None (occurrence: None)
  Receive Date: 20120201
  Receipt Date: 20120125
  Transmission Date: 20120608
  Serious: Yes (Other)
  Sender: FDA-Public Use
  Company Number: US-BRISTOL-MYERS SQUIBB COMPANY-16368276

PATIENT
  Age: 67 Year
  Sex: Female
  Weight: 68 kg

DRUGS (11)
  1. FENTANYL-100 [Concomitant]
  2. PREVACID [Concomitant]
  3. METOPROLOL TARTRATE [Concomitant]
  4. METFORMIN HCL [Concomitant]
  5. PREDNISONE TAB [Concomitant]
  6. WELLBUTRIN [Concomitant]
  7. VITAMIN TAB [Concomitant]
  8. PRAVASTATIN SODIUM [Concomitant]
  9. LOSARTAN POTASSIUM [Concomitant]
  10. ORENCIA [Suspect]
     Indication: RHEUMATOID ARTHRITIS
     Dosage: ORENCIA FOR APPROXIMATELY 4 TO 5 MONTHS,LAST INFUSION ON 29DEC11
  11. DIGOXIN [Concomitant]

REACTIONS (1)
  - DIABETES MELLITUS [None]
